FAERS Safety Report 6116343-X (Version None)
Quarter: 2009Q1

REPORT INFORMATION
  Report Type: 
  Country: None (occurrence: None)
  Receive Date: 20090314
  Receipt Date: 20081208
  Transmission Date: 20090719
  Serious: No
  Sender: FDA-Public Use
  Company Number: US-ABBOTT-08P-163-0491922-00

PATIENT
  Sex: Female
  Weight: 61.29 kg

DRUGS (5)
  1. HUMIRA [Suspect]
     Indication: RHEUMATOID ARTHRITIS
  2. HUMIRA [Suspect]
     Indication: ANKYLOSING SPONDYLITIS
     Dates: start: 20080303
  3. VICODIN [Concomitant]
     Indication: ARTHRALGIA
     Dosage: 3 A DAY
  4. LIDOCAINE [Concomitant]
     Indication: ARTHRALGIA
     Dosage: PATCHES
  5. CORTISONE [Concomitant]
     Indication: ARTHRALGIA
     Route: 050

REACTIONS (6)
  - ARTHRALGIA [None]
  - BLOOD URINE PRESENT [None]
  - HORMONE LEVEL ABNORMAL [None]
  - INFLUENZA [None]
  - MENSTRUAL DISORDER [None]
  - URINARY TRACT INFECTION [None]
